FAERS Safety Report 5232736-7 (Version None)
Quarter: 2007Q1

REPORT INFORMATION
  Report Type: 
  Country: None (occurrence: None)
  Receive Date: 20070206
  Receipt Date: 20070206
  Transmission Date: 20070707
  Serious: Yes (Other)
  Sender: FDA-Public Use
  Company Number: None

PATIENT
  Age: 46 Year
  Sex: Female
  Weight: 70.3075 kg

DRUGS (2)
  1. TOPAMAX [Suspect]
     Indication: MIGRAINE
     Dosage: 25 MG   2XDAY  PO; 50 MG  2XDAY  PO
     Route: 048
     Dates: start: 20070115, end: 20070121
  2. TOPAMAX [Suspect]
     Indication: MIGRAINE
     Dosage: 25 MG   2XDAY  PO; 50 MG  2XDAY  PO
     Route: 048
     Dates: start: 20070122, end: 20070201

REACTIONS (10)
  - AMENORRHOEA [None]
  - DRUG INTOLERANCE [None]
  - DRY MOUTH [None]
  - HEART RATE INCREASED [None]
  - HYPOAESTHESIA [None]
  - HYPOAESTHESIA FACIAL [None]
  - HYPOTONIA [None]
  - INSOMNIA [None]
  - METRORRHAGIA [None]
  - PARAESTHESIA [None]
